FAERS Safety Report 7121264-X (Version None)
Quarter: 2010Q4

REPORT INFORMATION
  Report Type: 
  Country: None (occurrence: None)
  Receive Date: 20101122
  Receipt Date: 20101122
  Transmission Date: 20110411
  Serious: Yes (Life-Threatening, Disabling, Other)
  Sender: FDA-Public Use
  Company Number: None

PATIENT
  Sex: Female
  Weight: 97.5234 kg

DRUGS (4)
  1. LIDOCAINE AND PRILOCAINE [Suspect]
     Indication: DENTAL CLEANING
     Dosage: DENTAL
     Route: 004
     Dates: start: 20101115, end: 20101115
  2. DIOVAN [Concomitant]
  3. METOPROLOL [Concomitant]
  4. WELCHOL [Concomitant]

REACTIONS (20)
  - BLOOD PRESSURE INCREASED [None]
  - CHEST DISCOMFORT [None]
  - CHILLS [None]
  - CONFUSIONAL STATE [None]
  - CRYING [None]
  - DRUG HYPERSENSITIVITY [None]
  - DYSPHONIA [None]
  - DYSPNOEA [None]
  - FATIGUE [None]
  - FEELING HOT [None]
  - HEADACHE [None]
  - HEART RATE INCREASED [None]
  - HEART RATE IRREGULAR [None]
  - HYPERHIDROSIS [None]
  - MUSCLE TWITCHING [None]
  - NERVOUSNESS [None]
  - SKIN DISCOLOURATION [None]
  - TREMOR [None]
  - URTICARIA [None]
  - VISION BLURRED [None]
